FAERS Safety Report 8396962-0 (Version None)
Quarter: 2012Q2

REPORT INFORMATION
  Report Type: 
  Country: None (occurrence: None)
  Receive Date: 20120530
  Receipt Date: 20120525
  Transmission Date: 20120825
  Serious: Yes (Other)
  Sender: FDA-Public Use
  Company Number: US-PFIZER INC-2012127143

PATIENT
  Sex: Male
  Weight: 111.57 kg

DRUGS (2)
  1. ENABLEX [Suspect]
     Indication: OBSTRUCTIVE UROPATHY
     Dosage: 7.5 MG, DAILY
     Dates: start: 20120422
  2. TOVIAZ [Suspect]
     Indication: MICTURITION DISORDER
     Dosage: UNK, DAILY
     Dates: start: 20120101, end: 20120101

REACTIONS (1)
  - DYSURIA [None]
